FAERS Safety Report 15633568 (Version 9)
Quarter: 2021Q1

REPORT INFORMATION
  Report Type: Spontaneous
  Country: US (occurrence: US)
  Receive Date: 20181119
  Receipt Date: 20210329
  Transmission Date: 20210419
  Serious: No
  Sender: FDA-Public Use
  Company Number: US-PFIZER INC-2018297276

PATIENT
  Age: 66 Year
  Sex: Male

DRUGS (6)
  1. LYRICA [Suspect]
     Active Substance: PREGABALIN
     Indication: INTERVERTEBRAL DISC DEGENERATION
     Dosage: 200 MG, DAILY (1 CAPSULE IN AM, 1 CAPSULE IN PM)
  2. LYRICA [Suspect]
     Active Substance: PREGABALIN
     Dosage: 100 MG
     Route: 048
  3. LYRICA [Suspect]
     Active Substance: PREGABALIN
     Dosage: 100 MG, 1X/DAY ( 1 CAPSULE IN AM AND 1 CAPSULE IN PM)
     Route: 048
  4. LYRICA [Suspect]
     Active Substance: PREGABALIN
     Dosage: 100 MG, 3X/DAY (1 CAPSULE THREE TIMES A DAY)
  5. LYRICA [Suspect]
     Active Substance: PREGABALIN
     Dosage: 100 MG, THRICE A DAY (1 CAPSULE IN A.M. AND 1 CAPSULE IN P.M.)
     Route: 048
  6. LYRICA [Suspect]
     Active Substance: PREGABALIN
     Dosage: 100 MG, 2X/DAY TWICE A DAY (1 CAPSULE IN AM AND 1 IN PM)
     Route: 048

REACTIONS (4)
  - Malaise [Unknown]
  - Mobility decreased [Unknown]
  - Intentional product use issue [Unknown]
  - Product prescribing issue [Unknown]
